FAERS Safety Report 5810086-5 (Version None)
Quarter: 2008Q3

REPORT INFORMATION
  Report Type: 
  Country: None (occurrence: None)
  Receive Date: 20080715
  Receipt Date: 20080714
  Transmission Date: 20090109
  Serious: Yes (Other)
  Sender: FDA-Public Use
  Company Number: B0529164A

PATIENT
  Age: 73 Year
  Sex: Female

DRUGS (1)
  1. QUERTO [Suspect]
     Dosage: 37.5MG PER DAY
     Route: 048
     Dates: start: 19980101

REACTIONS (4)
  - DYSPNOEA [None]
  - PHARYNGEAL OEDEMA [None]
  - PRURITUS [None]
  - TACHYCARDIA [None]
